FAERS Safety Report 23866401 (Version 1)
Quarter: 2024Q2

REPORT INFORMATION
  Report Type: Report from Study
  Country: US (occurrence: US)
  Receive Date: 20240517
  Receipt Date: 20240517
  Transmission Date: 20240716
  Serious: Yes (Other)
  Sender: FDA-Public Use
  Company Number: US-ASTELLAS-2024EU004758

PATIENT
  Sex: Male

DRUGS (9)
  1. ENZALUTAMIDE [Suspect]
     Active Substance: ENZALUTAMIDE
     Indication: Prostate cancer
     Dosage: UNK UNK, ONCE DAILY (TAKE 2(80 MG) TO 4 (160) TABLETS BY MOUTH ONCE DAILY AS DIRECTED)
     Route: 048
  2. ENZALUTAMIDE [Suspect]
     Active Substance: ENZALUTAMIDE
     Dosage: UNK UNK, ONCE DAILY (TAKE 2(80 MG) TO 4 (160) TABLETS BY MOUTH ONCE DAILY AS DIRECTED)
     Route: 048
  3. TAMSULOSIN [Concomitant]
     Active Substance: TAMSULOSIN
     Indication: Product used for unknown indication
     Dosage: 0.4 MG, UNKNOWN FREQ.
     Route: 065
  4. MIRTAZAPINE [Concomitant]
     Active Substance: MIRTAZAPINE
     Indication: Product used for unknown indication
     Route: 065
  5. BERBERINE [Concomitant]
     Active Substance: BERBERINE
     Indication: Product used for unknown indication
     Dosage: 200 MG, UNKNOWN FREQ. (ES)
     Route: 065
  6. PANTOPRAZOLE [Concomitant]
     Active Substance: PANTOPRAZOLE
     Indication: Product used for unknown indication
     Dosage: 20 MG, UNKNOWN FREQ. (TBE)
     Route: 065
  7. LUPRON DEPOT [Concomitant]
     Active Substance: LEUPROLIDE ACETATE
     Indication: Product used for unknown indication
     Route: 065
  8. NAPROXEN [Concomitant]
     Active Substance: NAPROXEN
     Indication: Product used for unknown indication
     Route: 065
  9. TYLENOL [Concomitant]
     Active Substance: ACETAMINOPHEN
     Indication: Product used for unknown indication
     Dosage: 500 MG, UNKNOWN FREQ. (EXTR)
     Route: 065

REACTIONS (15)
  - Neuropathy peripheral [Unknown]
  - Myocardial infarction [Unknown]
  - Back pain [Unknown]
  - Oedema peripheral [Unknown]
  - Hot flush [Unknown]
  - Blood pressure decreased [Unknown]
  - Glucose tolerance impaired [Unknown]
  - Dyspnoea exertional [Unknown]
  - Arthralgia [Unknown]
  - Gait disturbance [Unknown]
  - Skin ulcer [Unknown]
  - Pollakiuria [Unknown]
  - Osteopenia [Unknown]
  - Blood pH decreased [Unknown]
  - Wrong technique in product usage process [Unknown]
